FAERS Safety Report 4602232-6 (Version None)
Quarter: 2005Q1

REPORT INFORMATION
  Report Type: 
  Country: None (occurrence: None)
  Receive Date: 20050215
  Receipt Date: 20050107
  Transmission Date: 20050727
  Serious: Yes (Other)
  Sender: FDA-Public Use
  Company Number: 382091

PATIENT
  Age: 39 Year
  Sex: Male
  Weight: 88.9 kg

DRUGS (1)
  1. PEGASYS [Suspect]
     Indication: HEPATITIS C
     Dosage: SUBCUTANEOUS
     Route: 058
     Dates: start: 20031219, end: 20040817

REACTIONS (2)
  - ADVERSE EVENT [None]
  - RETINAL EXUDATES [None]
